FAERS Safety Report 9796086 (Version 3)
Quarter: 2014Q1

REPORT INFORMATION
  Report Type: Report from Study
  Country: US (occurrence: US)
  Receive Date: 20140103
  Receipt Date: 20140129
  Transmission Date: 20141002
  Serious: Yes (Other)
  Sender: FDA-Public Use
  Company Number: US-SA-2014SA000385

PATIENT
  Age: 66 Year
  Sex: Male
  Weight: 98.6 kg

DRUGS (7)
  1. CLOFARABINE [Suspect]
     Indication: ACUTE MYELOID LEUKAEMIA
     Dosage: 1-5 DAYS
     Route: 042
     Dates: start: 20130222, end: 20130226
  2. CLOFARABINE [Suspect]
     Indication: ACUTE MYELOID LEUKAEMIA
     Dosage: 1-5 DAYS
     Route: 042
     Dates: start: 20130603, end: 20130607
  3. CLOFARABINE [Suspect]
     Indication: ACUTE MYELOID LEUKAEMIA
     Route: 042
     Dates: start: 20130314, end: 20130318
  4. BORTEZOMIB [Suspect]
     Indication: PRODUCT USED FOR UNKNOWN INDICATION
     Route: 065
  5. LENALIDOMIDE [Suspect]
     Indication: PRODUCT USED FOR UNKNOWN INDICATION
     Route: 065
  6. ANTITHROMBOTIC AGENTS [Concomitant]
  7. DEXAMETHASONE [Concomitant]

REACTIONS (1)
  - Myelodysplastic syndrome [Unknown]
